FAERS Safety Report 15683599 (Version 2)
Quarter: 2018Q4

REPORT INFORMATION
  Report Type: Spontaneous
  Country: RS (occurrence: RS)
  Receive Date: 20181204
  Receipt Date: 20181219
  Transmission Date: 20190205
  Serious: Yes (Other)
  Sender: FDA-Public Use
  Company Number: RS-TEVA-2018-RS-982720

PATIENT
  Age: 46 Year
  Sex: Male

DRUGS (5)
  1. CYCLOPHOSPHAMIDE. [Suspect]
     Active Substance: CYCLOPHOSPHAMIDE
     Indication: GASTROINTESTINAL LYMPHOMA
     Dosage: RECEIVED SIX CYCLES OF R-CHOP PROTOCOL
     Route: 065
  2. DOXORUBICIN [Suspect]
     Active Substance: DOXORUBICIN
     Indication: GASTROINTESTINAL LYMPHOMA
     Dosage: RECEIVED SIX CYCLES OF R-CHOP PROTOCOL
     Route: 065
  3. VINCRISTINE [Suspect]
     Active Substance: VINCRISTINE
     Indication: GASTROINTESTINAL LYMPHOMA
     Dosage: RECEIVED SIX CYCLES OF R-CHOP PROTOCOL
     Route: 065
  4. PREDNISONE. [Suspect]
     Active Substance: PREDNISONE
     Indication: GASTROINTESTINAL LYMPHOMA
     Dosage: RECEIVED SIX CYCLES OF R-CHOP PROTOCOL
     Route: 065
  5. RITUXIMAB. [Suspect]
     Active Substance: RITUXIMAB
     Indication: GASTROINTESTINAL LYMPHOMA
     Dosage: RECEIVED SIX CYCLES OF R-CHOP PROTOCOL AND TWO CYCLES AS MONOTHERAPY
     Route: 065

REACTIONS (1)
  - Hepatitis B reactivation [Recovered/Resolved]
